FAERS Safety Report 9385884 (Version 2)
Quarter: 2013Q3

REPORT INFORMATION
  Report Type: Spontaneous
  Country: US (occurrence: US)
  Receive Date: 20130705
  Receipt Date: 20130722
  Transmission Date: 20140515
  Serious: No
  Sender: FDA-Public Use
  Company Number: US-TEVA-416598USA

PATIENT
  Sex: Female
  Weight: 65.83 kg

DRUGS (2)
  1. PROAIR HFA [Suspect]
     Indication: PROPHYLAXIS AGAINST BRONCHOSPASM
  2. SYMBICORT [Concomitant]
     Indication: ASTHMA

REACTIONS (2)
  - Wheezing [Unknown]
  - Drug ineffective [Unknown]
